FAERS Safety Report 4778901-4 (Version None)
Quarter: 2005Q3

REPORT INFORMATION
  Report Type: 
  Country: None (occurrence: None)
  Receive Date: 20050922
  Receipt Date: 20050909
  Transmission Date: 20060218
  Serious: Yes (Hospitalization, Other)
  Sender: FDA-Public Use
  Company Number: 2005126653

PATIENT
  Sex: Male
  Weight: 74.8435 kg

DRUGS (12)
  1. LIPITOR [Suspect]
     Indication: ILL-DEFINED DISORDER
     Dosage: 20 MG (20 MG,1 IN 1 D), ORAL
     Route: 048
  2. ZITHROMAX [Suspect]
     Indication: LUNG INFECTION
     Dosage: UNKNOWN, INTRAVENOUS
     Route: 042
     Dates: start: 20050101
  3. PREDNISONE [Suspect]
     Indication: LUNG INFECTION
     Dosage: UNKNOWN
     Route: 065
     Dates: start: 20050101
  4. ALBUTEROL [Concomitant]
  5. IPRATROPIUM BROMIDE [Concomitant]
  6. CARDIZEM [Concomitant]
  7. ALTACE [Concomitant]
  8. PREVACID [Concomitant]
  9. ZOLOFT [Concomitant]
  10. MUCINEX (GUAIFENESIN) [Concomitant]
  11. VITAMIN C (VITAMIN C) [Concomitant]
  12. COATED ASPIRIN (ACETYLSALICYLIC ACID) [Concomitant]

REACTIONS (5)
  - CAROTID ARTERY OCCLUSION [None]
  - DIFFICULT TO WEAN FROM VENTILATOR [None]
  - LUNG INFECTION [None]
  - OXYGEN SATURATION DECREASED [None]
  - RENAL DISORDER [None]
